FAERS Safety Report 11936560 (Version 1)
Quarter: 2016Q1

REPORT INFORMATION
  Report Type: Spontaneous
  Country: US (occurrence: US)
  Receive Date: 20160121
  Receipt Date: 20160121
  Transmission Date: 20160526
  Serious: Yes (Other)
  Sender: FDA-Public Use
  Company Number: US-PFIZER INC-2016025702

PATIENT
  Age: 46 Year
  Sex: Male
  Weight: 127 kg

DRUGS (1)
  1. PROSTIN VR PEDIATRIC [Suspect]
     Active Substance: ALPROSTADIL
     Indication: LIVER DISORDER
     Dosage: CONTINUOUS INFUSION ADMINISTERED PER RATE PROTOCOL

REACTIONS (4)
  - Pyrexia [Not Recovered/Not Resolved]
  - Device related infection [Not Recovered/Not Resolved]
  - Cytomegalovirus test positive [Unknown]
  - Product use issue [Not Recovered/Not Resolved]

NARRATIVE: CASE EVENT DATE: 201601
